FAERS Safety Report 7990141-4 (Version None)
Quarter: 2011Q4

REPORT INFORMATION
  Report Type: 
  Country: None (occurrence: None)
  Receive Date: 20111219
  Receipt Date: 20110218
  Transmission Date: 20120403
  Serious: No
  Sender: FDA-Public Use
  Company Number: US-ASTRAZENECA-2011SE09634

PATIENT
  Age: 48 Year
  Sex: Male
  Weight: 93.9 kg

DRUGS (4)
  1. CENTRUM VITAMINS [Concomitant]
  2. CRESTOR [Suspect]
     Route: 048
     Dates: start: 20110215, end: 20110215
  3. CRESTOR [Suspect]
     Route: 048
     Dates: start: 20110205, end: 20110209
  4. PRILOSEC [Suspect]
     Route: 048
     Dates: start: 20110205, end: 20110209

REACTIONS (6)
  - DIARRHOEA [None]
  - DRUG INEFFECTIVE [None]
  - NAUSEA [None]
  - PAIN IN EXTREMITY [None]
  - VOMITING [None]
  - MALAISE [None]
